FAERS Safety Report 18006219 (Version 1)
Quarter: 2020Q3

REPORT INFORMATION
  Report Type: Spontaneous
  Country: US (occurrence: US)
  Receive Date: 20200709
  Receipt Date: 20200709
  Transmission Date: 20201103
  Serious: Yes (Hospitalization)
  Sender: FDA-Public Use
  Company Number: None

PATIENT
  Age: 74 Year
  Sex: Male
  Weight: 96.6 kg

DRUGS (12)
  1. TIMOLOL OPTHALMIC DROPS [Concomitant]
  2. ECHINACEA [Concomitant]
     Active Substance: ECHINACEA, UNSPECIFIED
  3. IBUPROFEN. [Concomitant]
     Active Substance: IBUPROFEN
  4. LISINOPRIL. [Concomitant]
     Active Substance: LISINOPRIL
  5. BRIMONIDINE OPHTHALMIC DROPS [Concomitant]
  6. AMLODIPINE [Concomitant]
     Active Substance: AMLODIPINE BESYLATE
  7. ATORVASTATIN [Concomitant]
     Active Substance: ATORVASTATIN
  8. NAPROXEN. [Concomitant]
     Active Substance: NAPROXEN
  9. NIVOLUMAB 480 MG [Suspect]
     Active Substance: NIVOLUMAB
     Indication: GLIOBLASTOMA MULTIFORME
     Dosage: ?          OTHER FREQUENCY:EVERY 28 DAYS;?
     Route: 058
     Dates: start: 20190821, end: 20200610
  10. EYE HEALTH MULTIVITAMIN WITH MINERALS [Concomitant]
  11. BEVACIZUMAB 10MG/KG [Suspect]
     Active Substance: BEVACIZUMAB
     Indication: GLIOBLASTOMA MULTIFORME
     Route: 058
     Dates: start: 20190821, end: 20200610
  12. ASPIRIN. [Concomitant]
     Active Substance: ASPIRIN

REACTIONS (9)
  - Encephalopathy [None]
  - Dysarthria [None]
  - Aphasia [None]
  - Immune-mediated adverse reaction [None]
  - Hallucination, visual [None]
  - Hyperglycaemia [None]
  - Spinal osteoarthritis [None]
  - Hemiparesis [None]
  - Oedema peripheral [None]

NARRATIVE: CASE EVENT DATE: 20200625
